FAERS Safety Report 12516384 (Version 1)
Quarter: 2016Q2

REPORT INFORMATION
  Report Type: Spontaneous
  Country: CA (occurrence: CA)
  Receive Date: 20160630
  Receipt Date: 20160630
  Transmission Date: 20160815
  Serious: Yes (Hospitalization, Other)
  Sender: FDA-Public Use
  Company Number: CA-ASTRAZENECA-2016SE68660

PATIENT
  Age: 65 Year
  Sex: Female
  Weight: 68 kg

DRUGS (6)
  1. CRESTOR [Suspect]
     Active Substance: ROSUVASTATIN CALCIUM
     Indication: ARTERIOSCLEROSIS
     Route: 048
  2. MONOPRIL [Concomitant]
     Active Substance: FOSINOPRIL SODIUM
  3. ASA [Concomitant]
     Active Substance: ASPIRIN
  4. EZETROL [Concomitant]
     Active Substance: EZETIMIBE
  5. VITAMIN D [Concomitant]
     Active Substance: CHOLECALCIFEROL
  6. PANTOLOC [Concomitant]
     Active Substance: PANTOPRAZOLE SODIUM

REACTIONS (4)
  - Muscular weakness [Unknown]
  - Rhabdomyolysis [Unknown]
  - Blood creatine increased [Unknown]
  - Viral myositis [Unknown]
